FAERS Safety Report 8077155-3 (Version None)
Quarter: 2012Q1

REPORT INFORMATION
  Report Type: 
  Country: None (occurrence: None)
  Receive Date: 20120127
  Receipt Date: 20120123
  Transmission Date: 20120608
  Serious: Yes (Death)
  Sender: FDA-Public Use
  Company Number: PHHY2011CA94677

PATIENT
  Sex: Male

DRUGS (1)
  1. SANDOSTATIN LAR [Suspect]
     Indication: PANCREATIC CARCINOMA
     Dosage: 30 MG, QMO
     Route: 030
     Dates: start: 20111021, end: 20111220

REACTIONS (9)
  - DEATH [None]
  - MALAISE [None]
  - PAIN [None]
  - DECREASED APPETITE [None]
  - NAUSEA [None]
  - EATING DISORDER [None]
  - WEIGHT DECREASED [None]
  - FLATULENCE [None]
  - ABDOMINAL DISTENSION [None]
